FAERS Safety Report 6999500-X (Version None)
Quarter: 2010Q3

REPORT INFORMATION
  Report Type: 
  Country: None (occurrence: None)
  Receive Date: 20100920
  Receipt Date: 20070508
  Transmission Date: 20110219
  Serious: Yes (Other)
  Sender: FDA-Public Use
  Company Number: US-ASTRAZENECA-2006UW11104

PATIENT
  Age: 26 Year
  Sex: Female
  Weight: 115.7 kg

DRUGS (8)
  1. SEROQUEL [Suspect]
     Indication: DEPRESSION
     Route: 048
     Dates: start: 20021201, end: 20050701
  2. SEROQUEL [Suspect]
     Indication: SLEEP DISORDER
     Route: 048
     Dates: start: 20021201, end: 20050701
  3. SEROQUEL [Suspect]
     Dosage: 25 MG, 1/2-2 TABLETS DAILY
     Route: 048
     Dates: start: 20040416
  4. SEROQUEL [Suspect]
     Dosage: 25 MG, 1/2-2 TABLETS DAILY
     Route: 048
     Dates: start: 20040416
  5. PROZAC [Concomitant]
     Dates: start: 19981017
  6. DEPAKOTE [Concomitant]
     Dates: start: 19981026
  7. LEXAPRO [Concomitant]
     Dosage: 10 MG - 20 MG, FLUCTUATING
     Dates: start: 20040127
  8. ZOLOFT [Concomitant]
     Indication: DEPRESSION
     Dosage: 50 MG - 100 MG, FLUCTUATING
     Dates: start: 20050930

REACTIONS (4)
  - DIABETES MELLITUS [None]
  - DIABETES MELLITUS INADEQUATE CONTROL [None]
  - HYPERGLYCAEMIA [None]
  - TYPE 2 DIABETES MELLITUS [None]
